FAERS Safety Report 7207163-3 (Version None)
Quarter: 2010Q4

REPORT INFORMATION
  Report Type: 
  Country: None (occurrence: None)
  Receive Date: 20101221
  Receipt Date: 20101209
  Transmission Date: 20110411
  Serious: Yes (Hospitalization)
  Sender: FDA-Public Use
  Company Number: DSJ-2010-21753

PATIENT
  Age: 74 Year
  Sex: Male

DRUGS (4)
  1. BENICAR HCT [Suspect]
     Indication: HYPERTENSION
     Dosage: 20/12.5 MG (1 IN 1 D), PER ORAL
     Dates: start: 20091001
  2. ACETYLSALICYLIC ACID (ACETYLSALICYLC ACID) [Concomitant]
  3. SIMVASTATIN [Concomitant]
  4. BROMAZEPAM (BROMAZEPAM) (BROMAZEPAM) [Concomitant]

REACTIONS (3)
  - ANKLE FRACTURE [None]
  - BLOOD PRESSURE INCREASED [None]
  - DRUG INEFFECTIVE [None]
